FAERS Safety Report 7588313-6 (Version None)
Quarter: 2011Q3

REPORT INFORMATION
  Report Type: 
  Country: None (occurrence: None)
  Receive Date: 20110705
  Receipt Date: 20091226
  Transmission Date: 20111222
  Serious: Yes (Other)
  Sender: FDA-Public Use
  Company Number: US-BAYER-200943313NA

PATIENT
  Age: 43 Year
  Sex: Male
  Weight: 104 kg

DRUGS (11)
  1. LIPITOR [Concomitant]
     Dosage: 40 MG
     Route: 048
  2. PACERONE [Concomitant]
     Dosage: 200 MG
     Route: 048
     Dates: start: 20060701
  3. COREG [Concomitant]
     Dosage: 12.5 MG
     Route: 048
  4. LASIX [Concomitant]
     Indication: CARDIAC FAILURE CONGESTIVE
     Dosage: 40 MG
     Route: 048
  5. GABAPENTIN [Concomitant]
     Dosage: 300 MG
     Route: 048
     Dates: start: 20060601
  6. LISINOPRIL [Concomitant]
     Indication: HYPERTENSION
     Dosage: 5 MG
     Route: 048
     Dates: start: 20060913
  7. WARFARIN SODIUM [Concomitant]
     Dosage: 2.5 MG
     Route: 048
     Dates: start: 20060701
  8. TIZANIDINE HCL [Concomitant]
     Dosage: 4 MG
     Route: 048
     Dates: start: 20060601
  9. ALPRAZOLAM [Concomitant]
     Dosage: 0.5 MG
     Route: 048
  10. TRASYLOL [Suspect]
     Indication: CORONARY ARTERY BYPASS
     Dosage: UNK
     Route: 042
     Dates: start: 20061001
  11. NOVOLIN 70/30 [Concomitant]
     Dosage: UNK
     Route: 058

REACTIONS (8)
  - PAIN [None]
  - RENAL FAILURE ACUTE [None]
  - RENAL FAILURE [None]
  - UNEVALUABLE EVENT [None]
  - INJURY [None]
  - RENAL INJURY [None]
  - ANXIETY [None]
  - EMOTIONAL DISTRESS [None]
